FAERS Safety Report 10565229 (Version 2)
Quarter: 2014Q4

REPORT INFORMATION
  Report Type: Spontaneous
  Country: KZ (occurrence: KZ)
  Receive Date: 20141105
  Receipt Date: 20141125
  Transmission Date: 20150529
  Serious: Yes (Death, Life-Threatening, Hospitalization)
  Sender: FDA-Public Use
  Company Number: KZ-OTSUKA-US-2014-13305

PATIENT

DRUGS (5)
  1. DACOGEN [Suspect]
     Active Substance: DECITABINE
     Dosage: 44 MG MILLIGRAM(S), UNKNOWN, 5 IN,
     Route: 042
     Dates: start: 20140419, end: 20140423
  2. INDAPAMIDE. [Concomitant]
     Active Substance: INDAPAMIDE
     Indication: HYPERTENSION
     Dosage: UNKNOWN
     Route: 065
  3. DACOGEN [Suspect]
     Active Substance: DECITABINE
     Indication: MYELODYSPLASTIC SYNDROME
     Dosage: 44 MG MILLIGRAM(S), UNKNOWN
     Route: 042
     Dates: start: 20140312, end: 20140316
  4. DACOGEN [Suspect]
     Active Substance: DECITABINE
     Dosage: 44 MG MILLIGRAM(S), UNKNOWN, 5 IN
     Route: 042
     Dates: start: 20140516, end: 20140521
  5. AMLODIPINE W/LISINOPRIL [Concomitant]
     Indication: HYPERTENSION
     Dosage: 25 MG MILLIGRAM(S) IN 1 DAY
     Route: 065

REACTIONS (4)
  - Injection site pain [Fatal]
  - Gallbladder disorder [Unknown]
  - Systemic inflammatory response syndrome [Fatal]
  - Hepatosplenomegaly [Unknown]
